FAERS Safety Report 8735616 (Version 2)
Quarter: 2012Q4

REPORT INFORMATION
  Report Type: 
  Country: US (occurrence: US)
  Receive Date: 20120822
  Receipt Date: 20120921
  Transmission Date: 20130627
  Serious: No
  Sender: FDA-Public Use
  Company Number: US-PFIZER INC-2012202140

PATIENT
  Age: 70 Year
  Sex: Female
  Weight: 77.1 kg

DRUGS (21)
  1. TIKOSYN [Suspect]
     Indication: ATRIAL FIBRILLATION
     Dosage: 250 ug, 2x/day
     Route: 048
     Dates: start: 20120802
  2. TIKOSYN [Suspect]
     Indication: ATRIAL FIBRILLATION
     Dosage: UNK
  3. AMLODIPINE BESILATE [Suspect]
     Dosage: 5 mg, UNK
  4. METOPROLOL [Concomitant]
     Indication: HYPERTENSION
     Dosage: 25 mg, UNK
  5. SYNTHROID [Concomitant]
     Indication: HYPOTHYROIDISM
     Dosage: 0.075 mg, UNK
  6. FEXOFENADINE [Concomitant]
     Indication: HYPERSENSITIVITY
  7. MAXZIDE [Concomitant]
  8. CRESTOR [Concomitant]
     Indication: HYPERLIPIDAEMIA
     Dosage: 20 mg, UNK
  9. LOPERAMIDE [Concomitant]
     Indication: DIARRHOEA
     Dosage: UNK
  10. AZELASTINE [Concomitant]
     Indication: HYPERSENSITIVITY
     Dosage: UNK
  11. NASONEX [Concomitant]
     Indication: HYPERSENSITIVITY
     Dosage: UNK
  12. POTASSIUM [Concomitant]
     Indication: BLOOD POTASSIUM DECREASED
     Dosage: 20 mEq, 2x/day
  13. CITALOPRAM [Concomitant]
     Indication: DEPRESSION
     Dosage: 10 mg, UNK
  14. COUMADIN [Concomitant]
     Dosage: 5 mg, UNK
  15. LOSARTAN [Concomitant]
     Dosage: UNK
  16. HYDROCHLOROTHIAZIDE [Concomitant]
     Dosage: UNK
  17. VITAMIN C [Concomitant]
     Dosage: UNK
  18. VITAMIN D3 [Concomitant]
     Dosage: UNK
  19. CO-Q-10 [Concomitant]
     Dosage: 100 mg, UNK
  20. FOLIC ACID [Concomitant]
     Dosage: 400 ug, 1x/day
  21. LOVAZA [Concomitant]
     Dosage: UNK

REACTIONS (4)
  - Drug ineffective [Unknown]
  - Hot flush [Not Recovered/Not Resolved]
  - Dizziness [Not Recovered/Not Resolved]
  - Feeling abnormal [Not Recovered/Not Resolved]
